FAERS Safety Report 4437182-1 (Version None)
Quarter: 2004Q3

REPORT INFORMATION
  Report Type: 
  Country: None (occurrence: None)
  Receive Date: 20040827
  Receipt Date: 20040820
  Transmission Date: 20050211
  Serious: Yes (Other)
  Sender: FDA-Public Use
  Company Number: 2004229797US

PATIENT
  Age: 9 Month
  Weight: 7.5 kg

DRUGS (1)
  1. ZYVOX [Suspect]
     Dosage: 10 MG/KG, TID
     Dates: start: 20040820

REACTIONS (2)
  - ACIDOSIS [None]
  - HYPERNATRAEMIA [None]
